FAERS Safety Report 6601114-8 (Version None)
Quarter: 2010Q1

REPORT INFORMATION
  Report Type: 
  Country: None (occurrence: None)
  Receive Date: 20100217
  Receipt Date: 20100201
  Transmission Date: 20100710
  Serious: Yes (Death, Other)
  Sender: FDA-Public Use
  Company Number: 2008001615

PATIENT
  Age: 61 Year
  Sex: Female
  Weight: 40 kg

DRUGS (12)
  1. ERLOTINIB (ERLOTINIB) (TABLET) (ERLOTINIB) [Suspect]
     Indication: LUNG ADENOCARCINOMA
     Dosage: 150 MG, QD, ORAL
     Route: 048
     Dates: start: 20080422, end: 20080623
  2. IRESSA [Suspect]
     Indication: LUNG ADENOCARCINOMA
     Dosage: ORAL
     Route: 048
     Dates: start: 20080201, end: 20080401
  3. BETAMETHASONE [Concomitant]
  4. MUCOSTA (REBAMIPIDE) [Concomitant]
  5. ZANTAC 150 [Concomitant]
  6. MOVAMIN (PROCHLORPERAZINE) [Concomitant]
  7. MS CONTIN [Concomitant]
  8. MORPHINE [Concomitant]
  9. ENSURE LIQUID [Concomitant]
  10. MAGNESIUM OXIDE (MAGNESIUM OXIDE) [Concomitant]
  11. DEPAS (ETIZOLAM) [Concomitant]
  12. LORAZEPAM [Concomitant]

REACTIONS (4)
  - BLOOD LACTATE DEHYDROGENASE INCREASED [None]
  - LUNG ADENOCARCINOMA [None]
  - MALIGNANT NEOPLASM PROGRESSION [None]
  - RASH PAPULAR [None]
